FAERS Safety Report 11558720 (Version 2)
Quarter: 2016Q1

REPORT INFORMATION
  Report Type: Report from Study
  Country: US (occurrence: US)
  Receive Date: 20150928
  Receipt Date: 20160131
  Transmission Date: 20160525
  Serious: No
  Sender: FDA-Public Use
  Company Number: US-AMGEN-USASL2015098950

PATIENT
  Age: 64 Year
  Sex: Female

DRUGS (1)
  1. ENBREL [Suspect]
     Active Substance: ETANERCEPT
     Indication: RHEUMATOID ARTHRITIS
     Dosage: 50 MG, QWK
     Route: 065
     Dates: start: 201509

REACTIONS (6)
  - Laceration [Unknown]
  - Malaise [Unknown]
  - Oropharyngeal pain [Unknown]
  - Sinusitis [Unknown]
  - Nasopharyngitis [Unknown]
  - Fall [Unknown]

NARRATIVE: CASE EVENT DATE: 201509
